FAERS Safety Report 5192512-0 (Version None)
Quarter: 2006Q4

REPORT INFORMATION
  Report Type: 
  Country: None (occurrence: None)
  Receive Date: 20061220
  Receipt Date: 20061213
  Transmission Date: 20070319
  Serious: Yes (Hospitalization)
  Sender: FDA-Public Use
  Company Number: A-CH2006-13675

PATIENT
  Age: 62 Year
  Sex: Male
  Weight: 85 kg

DRUGS (12)
  1. TRACLEER [Suspect]
     Indication: PULMONARY HYPERTENSION
     Dosage: 125 MG, BID, ORAL; 62.5 MG, BID, ORAL
     Route: 048
     Dates: start: 20060222, end: 20061117
  2. TRACLEER [Suspect]
     Indication: PULMONARY HYPERTENSION
     Dosage: 125 MG, BID, ORAL; 62.5 MG, BID, ORAL
     Route: 048
     Dates: start: 20061118, end: 20061120
  3. TRACLEER [Suspect]
     Indication: PULMONARY HYPERTENSION
     Dosage: 125 MG, BID, ORAL; 62.5 MG, BID, ORAL
     Route: 048
     Dates: start: 20061101
  4. ENALAPRIL MALEATE [Suspect]
     Dosage: 5 MG, OD
     Dates: start: 20060620, end: 20061120
  5. FUROSEMIDE [Suspect]
     Dosage: 120MG, OD
     Dates: start: 20060201
  6. SPIRONOLACTONE [Suspect]
     Dosage: 100 MG, OD
     Dates: start: 20060201, end: 20061120
  7. ACENOCOUMAROL [Suspect]
     Dates: start: 20060201, end: 20061120
  8. ALLOPURINOL SODIUM [Suspect]
     Dates: end: 20061120
  9. METFORMIN HCL [Suspect]
     Dosage: 1700 MG, OD
     Dates: start: 20060201, end: 20061120
  10. SIMVASTATIN [Suspect]
     Dosage: 40 MG, OD
     Dates: end: 20061120
  11. DIGOXIN [Suspect]
     Dosage: 0.25 MG, OD
     Dates: start: 20060201
  12. FOLIC ACID [Suspect]
     Dates: end: 20061120

REACTIONS (5)
  - AUTOIMMUNE DISORDER [None]
  - PANCREATITIS HAEMORRHAGIC [None]
  - PANCREATITIS NECROTISING [None]
  - RENAL FAILURE [None]
  - RESPIRATORY FAILURE [None]
